FAERS Safety Report 24151113 (Version 3)
Quarter: 2024Q4

REPORT INFORMATION
  Report Type: Report from Study
  Country: AR (occurrence: AR)
  Receive Date: 20240730
  Receipt Date: 20241111
  Transmission Date: 20250114
  Serious: Yes (Other)
  Sender: NOVARTIS
  Company Number: AR-002147023-NVSC2023AR250496

PATIENT
  Age: 75 Year
  Sex: Female

DRUGS (3)
  1. COSENTYX [Suspect]
     Active Substance: SECUKINUMAB
     Indication: Psoriasis
     Dosage: 300 MG, QMO
     Route: 058
     Dates: start: 20230822
  2. COSENTYX [Suspect]
     Active Substance: SECUKINUMAB
     Dosage: 300 MG, QMO
     Route: 058
     Dates: start: 202310
  3. COSENTYX [Suspect]
     Active Substance: SECUKINUMAB
     Dosage: UNK, QMO
     Route: 058
     Dates: start: 2023

REACTIONS (7)
  - Pneumonia [Unknown]
  - Dysphonia [Unknown]
  - Pulmonary congestion [Unknown]
  - Psoriasis [Not Recovered/Not Resolved]
  - Bone disorder [Unknown]
  - Gait inability [Unknown]
  - Hypertension [Unknown]

NARRATIVE: CASE EVENT DATE: 20240712
